FAERS Safety Report 5332766-0 (Version None)
Quarter: 2007Q2

REPORT INFORMATION
  Report Type: 
  Country: None (occurrence: None)
  Receive Date: 20070523
  Receipt Date: 20070511
  Transmission Date: 20071010
  Serious: Yes (Other)
  Sender: FDA-Public Use
  Company Number: FR-PFIZER INC-2007039264

PATIENT
  Sex: Female

DRUGS (2)
  1. NEURONTIN [Suspect]
  2. LYRICA [Suspect]
     Indication: POST HERPETIC NEURALGIA

REACTIONS (3)
  - ASCITES [None]
  - HEPATITIS [None]
  - OEDEMA PERIPHERAL [None]
